FAERS Safety Report 20494226 (Version 5)
Quarter: 2024Q2

REPORT INFORMATION
  Report Type: Other
  Country: US (occurrence: None)
  Receive Date: 20220221
  Receipt Date: 20240402
  Transmission Date: 20240716
  Serious: Yes (Hospitalization)
  Sender: FDA-Public Use
  Company Number: US-ROCHE-3022221

PATIENT
  Age: 65 Year
  Sex: Female

DRUGS (9)
  1. OCREVUS [Suspect]
     Active Substance: OCRELIZUMAB
     Indication: Relapsing-remitting multiple sclerosis
     Dosage: LAST DATE OF TREATMENT 03/MAR/2020
     Route: 042
     Dates: start: 20170724
  2. PFIZER-BIONTECH COVID-19 VACCINE [Concomitant]
     Active Substance: TOZINAMERAN
  3. BACLOFEN [Concomitant]
     Active Substance: BACLOFEN
  4. TIZANIDINE [Concomitant]
     Active Substance: TIZANIDINE
  5. GABAPENTIN [Concomitant]
     Active Substance: GABAPENTIN
  6. TOPROL XL [Concomitant]
     Active Substance: METOPROLOL SUCCINATE
  7. LEVOTHYROXINE [Concomitant]
     Active Substance: LEVOTHYROXINE\LEVOTHYROXINE SODIUM
  8. PANTOPRAZOLE [Concomitant]
     Active Substance: PANTOPRAZOLE
  9. XARELTO [Concomitant]
     Active Substance: RIVAROXABAN

REACTIONS (9)
  - COVID-19 [Recovered/Resolved]
  - Septic shock [Recovered/Resolved]
  - Pulmonary embolism [Recovered/Resolved with Sequelae]
  - Intervertebral disc disorder [Recovered/Resolved with Sequelae]
  - Neurogenic bladder [Not Recovered/Not Resolved]
  - Urinary tract infection [Not Recovered/Not Resolved]
  - Gait disturbance [Not Recovered/Not Resolved]
  - Rash [Not Recovered/Not Resolved]
  - Systemic lupus erythematosus [Unknown]

NARRATIVE: CASE EVENT DATE: 20200901
